FAERS Safety Report 4648987-6 (Version None)
Quarter: 2005Q2

REPORT INFORMATION
  Report Type: 
  Country: None (occurrence: None)
  Receive Date: 20050427
  Receipt Date: 20050418
  Transmission Date: 20051028
  Serious: Yes (Hospitalization, Other)
  Sender: FDA-Public Use
  Company Number: 2005-04-1180

PATIENT
  Age: 23 Year
  Sex: Female

DRUGS (3)
  1. TEMODAR [Suspect]
     Dosage: SEE IMAGE
     Route: 048
     Dates: start: 20041001, end: 20050415
  2. TEMODAR [Suspect]
     Dosage: SEE IMAGE
     Route: 048
     Dates: start: 20040813
  3. RADIATION THERAPY [Concomitant]

REACTIONS (3)
  - LABORATORY TEST ABNORMAL [None]
  - LETHARGY [None]
  - PANCREATITIS [None]
